FAERS Safety Report 6477486-4 (Version None)
Quarter: 2009Q4

REPORT INFORMATION
  Report Type: 
  Country: None (occurrence: None)
  Receive Date: 20091207
  Receipt Date: 20091118
  Transmission Date: 20100525
  Serious: Yes (Other)
  Sender: FDA-Public Use
  Company Number: ES-SANOFI-AVENTIS-A01200809051

PATIENT
  Age: 66 Year
  Sex: Female

DRUGS (4)
  1. OXALIPLATIN [Suspect]
     Indication: COLON CANCER
     Dosage: DOSE TEXT: ONCE A MONTHUNIT DOSE: 5 MG/ML
     Route: 041
     Dates: start: 20071121, end: 20071121
  2. OXALIPLATIN [Suspect]
     Route: 041
     Dates: start: 20080201, end: 20080201
  3. XELODA [Suspect]
     Indication: COLON CANCER
     Dosage: DOSE TEXT: 2.5 G TOTAL DURING 1 MONTH (14 ADMINISTRATIONS)UNIT DOSE: 500 MG
     Route: 048
     Dates: start: 20071122
  4. XELODA [Suspect]
     Route: 048
     Dates: end: 20080204

REACTIONS (1)
  - CUTANEOUS LUPUS ERYTHEMATOSUS [None]
